FAERS Safety Report 10926034 (Version 3)
Quarter: 2015Q2

REPORT INFORMATION
  Report Type: Spontaneous
  Country: AT (occurrence: AT)
  Receive Date: 20150318
  Receipt Date: 20150415
  Transmission Date: 20150821
  Serious: Yes (Other)
  Sender: FDA-Public Use
  Company Number: AT-TAKEDA-2015TUS003381

PATIENT
  Age: 69 Year
  Sex: Male
  Weight: 77 kg

DRUGS (4)
  1. ADENURIC [Suspect]
     Active Substance: FEBUXOSTAT
     Indication: PRODUCT USED FOR UNKNOWN INDICATION
     Dosage: 80 MG (80 MG,1 IN 1 D)
     Route: 065
     Dates: start: 201407, end: 20141001
  2. AGLANDIN [Concomitant]
     Dosage: UNK
     Route: 065
     Dates: start: 2012
  3. NOMEXOR [Concomitant]
     Active Substance: NEBIVOLOL HYDROCHLORIDE
     Dosage: 5 MG (5 MG,1 IN 1 D)
     Route: 065
     Dates: start: 2012
  4. LISINOPRIL. [Concomitant]
     Active Substance: LISINOPRIL
     Dosage: UNK
     Route: 065
     Dates: start: 2011

REACTIONS (1)
  - VIth nerve paresis [Unknown]

NARRATIVE: CASE EVENT DATE: 20141001
